FAERS Safety Report 17277220 (Version 2)
Quarter: 2020Q1

REPORT INFORMATION
  Report Type: Report from Study
  Country: CO (occurrence: CO)
  Receive Date: 20200116
  Receipt Date: 20200213
  Transmission Date: 20200409
  Serious: Yes (Other)
  Sender: FDA-Public Use
  Company Number: CO-JNJFOC-20191033450

PATIENT
  Age: 77 Year
  Sex: Female
  Weight: 44 kg

DRUGS (8)
  1. SIMPONI [Suspect]
     Active Substance: GOLIMUMAB
     Route: 058
     Dates: start: 20191105
  2. SIMPONI [Suspect]
     Active Substance: GOLIMUMAB
     Route: 058
     Dates: start: 20180810, end: 20180810
  3. SIMPONI [Suspect]
     Active Substance: GOLIMUMAB
     Route: 058
     Dates: start: 20181128, end: 20181128
  4. NIFEDIPINE. [Concomitant]
     Active Substance: NIFEDIPINE
     Route: 048
  5. BIPERIDEN [Concomitant]
     Active Substance: BIPERIDEN
     Route: 048
  6. SIMPONI [Suspect]
     Active Substance: GOLIMUMAB
     Indication: RHEUMATOID ARTHRITIS
     Route: 058
     Dates: start: 20180416, end: 20180416
  7. SIMPONI [Suspect]
     Active Substance: GOLIMUMAB
     Route: 058
     Dates: start: 20190211, end: 20190717
  8. LOSARTAN. [Concomitant]
     Active Substance: LOSARTAN
     Route: 048

REACTIONS (8)
  - Arthritis [Recovering/Resolving]
  - Ear infection [Unknown]
  - Nausea [Recovering/Resolving]
  - Vulvovaginal discomfort [Recovering/Resolving]
  - Hypertension [Recovering/Resolving]
  - Product dose omission [Unknown]
  - Parkinson^s disease [Recovering/Resolving]
  - Influenza [Recovering/Resolving]

NARRATIVE: CASE EVENT DATE: 2019
